FAERS Safety Report 7509064-X (Version None)
Quarter: 2011Q2

REPORT INFORMATION
  Report Type: 
  Country: None (occurrence: None)
  Receive Date: 20110527
  Receipt Date: 20110513
  Transmission Date: 20111010
  Serious: Yes (Life-Threatening, Hospitalization, Other)
  Sender: FDA-Public Use
  Company Number: DE-CELGENEUS-062-21880-10101799

PATIENT
  Sex: Male

DRUGS (6)
  1. CYCLOPHOSPHAMIDE [Concomitant]
     Route: 065
     Dates: start: 20101007
  2. REVLIMID [Suspect]
     Indication: MULTIPLE MYELOMA
     Dosage: 10 MILLIGRAM
     Route: 048
     Dates: end: 20100913
  3. DEXAMETHASONE [Suspect]
     Route: 065
     Dates: start: 20101007
  4. DEXAMETHASONE [Suspect]
     Indication: MULTIPLE MYELOMA
     Dosage: 40 MILLIGRAM
     Route: 048
     Dates: end: 20100901
  5. ELOTUZUMAB [Suspect]
     Indication: MULTIPLE MYELOMA
     Dosage: 20 MILLIGRAM
     Route: 051
     Dates: end: 20100902
  6. VELCADE [Concomitant]
     Route: 065
     Dates: start: 20101007

REACTIONS (2)
  - PANCYTOPENIA [None]
  - VISCERAL LEISHMANIASIS [None]
